FAERS Safety Report 16872159 (Version 1)
Quarter: 2019Q4

REPORT INFORMATION
  Report Type: Spontaneous
  Country: CH (occurrence: CH)
  Receive Date: 20191001
  Receipt Date: 20191001
  Transmission Date: 20200122
  Serious: Yes (Other)
  Sender: FDA-Public Use
  Company Number: CH-TEVA-2019-CH-1115042

PATIENT
  Age: 47 Year
  Sex: Female

DRUGS (24)
  1. PERINDOPRIL [Concomitant]
     Active Substance: PERINDOPRIL
     Dates: end: 20190818
  2. SEVREDOL [Concomitant]
     Active Substance: MORPHINE
     Dates: start: 20190820, end: 20190820
  3. SUPRADYN [Concomitant]
     Active Substance: ASCORBIC ACID\MINERALS\VITAMINS
     Dosage: NOT TAKEN
     Dates: end: 20190902
  4. MG 5-GRANORAL [Concomitant]
     Dates: start: 20190820
  5. HEPARIN [Suspect]
     Active Substance: HEPARIN SODIUM
     Dosage: AS NECESSARY
     Route: 042
     Dates: start: 20190818, end: 20190824
  6. HEPARIN [Suspect]
     Active Substance: HEPARIN SODIUM
     Dosage: AS NECESSARY
     Route: 042
     Dates: start: 20190826, end: 20190827
  7. WARFARINE [Suspect]
     Active Substance: WARFARIN
     Dosage: 5 MILLIGRAM DAILY;
     Route: 048
     Dates: start: 201907, end: 20190818
  8. CLEXANE [Suspect]
     Active Substance: ENOXAPARIN SODIUM
     Dosage: 120 MILLIGRAM DAILY;
     Dates: start: 20190823, end: 20190825
  9. NEXIUM MUPS [Suspect]
     Active Substance: ESOMEPRAZOLE
     Dosage: 40 MILLIGRAM DAILY;
     Route: 048
     Dates: start: 20190820
  10. ASPIRIN CARDIO [Concomitant]
     Active Substance: ASPIRIN
     Dates: start: 2007, end: 2019
  11. FUROSEMIDE. [Concomitant]
     Active Substance: FUROSEMIDE
     Dates: end: 20190818
  12. FERRUM [Concomitant]
     Active Substance: FERROUS FUMARATE
     Dates: start: 20190820
  13. TRAMAL [Concomitant]
     Active Substance: TRAMADOL
     Dosage: NOT TAKEN ; AS NECESSARY
     Dates: end: 20190902
  14. WARFARINE [Suspect]
     Active Substance: WARFARIN
     Dosage: 7.5 MILLIGRAM DAILY;
     Route: 048
     Dates: start: 20190902
  15. IRFEN [Suspect]
     Active Substance: IBUPROFEN
     Dosage: 1200 MILLIGRAM DAILY;
     Route: 048
     Dates: start: 20190825, end: 20190902
  16. LASIX [Concomitant]
     Active Substance: FUROSEMIDE
     Dates: start: 20190820, end: 20190821
  17. MOVICOL [Concomitant]
     Active Substance: POLYETHYLENE GLYCOL 3350\POTASSIUM CHLORIDE\SODIUM BICARBONATE\SODIUM CHLORIDE
     Dates: start: 20190820
  18. PREDNISONE. [Concomitant]
     Active Substance: PREDNISONE
     Dates: start: 20190827, end: 20190829
  19. WARFARINE [Suspect]
     Active Substance: WARFARIN
     Dosage: 5 MILLIGRAM DAILY;
     Route: 048
     Dates: start: 20190828, end: 20190902
  20. CLEXANE [Suspect]
     Active Substance: ENOXAPARIN SODIUM
     Dosage: 140 MILLIGRAM DAILY;
     Dates: start: 20190827
  21. DAFALGAN [Suspect]
     Active Substance: ACETAMINOPHEN
     Dosage: 3 GRAM DAILY;
     Route: 048
     Dates: start: 20190820, end: 20190828
  22. DAFALGAN [Suspect]
     Active Substance: ACETAMINOPHEN
     Dosage: NOT TAKEN ; AS NECESSARY
     Route: 048
     Dates: start: 20190828, end: 20190902
  23. TEMESTA (LORAZEPAM) [Suspect]
     Active Substance: LORAZEPAM
     Dosage: 1 MG 1X PER DAY MAXIMUM, AS NECESSARY
     Dates: start: 20190827, end: 20190902
  24. PLAQUENIL [Concomitant]
     Active Substance: HYDROXYCHLOROQUINE SULFATE
     Dates: start: 2007, end: 2019

REACTIONS (1)
  - Mixed liver injury [Recovering/Resolving]

NARRATIVE: CASE EVENT DATE: 20190902
